FAERS Safety Report 8134484 (Version 4)
Quarter: 2012Q4

REPORT INFORMATION
  Report Type: Report from Study
  Country: US (occurrence: US)
  Receive Date: 20110913
  Receipt Date: 20120924
  Transmission Date: 20130627
  Serious: Yes (Other)
  Sender: FDA-Public Use
  Company Number: US-ABBOTT-11P-163-0852870-00

PATIENT
  Age: 59 Year
  Sex: Female
  Weight: 78.09 kg

DRUGS (21)
  1. NEBULIZER [Concomitant]
     Indication: RESPIRATORY TRACT CONGESTION
  2. XANAX [Concomitant]
     Indication: PANIC ATTACK
     Dosage: At night
  3. XANAX [Concomitant]
     Indication: INSOMNIA
  4. TIZANIDINE [Concomitant]
     Indication: MUSCLE SPASMS
  5. FLECTOR [Concomitant]
     Indication: PRODUCT USED FOR UNKNOWN INDICATION
  6. LOVAZA [Concomitant]
     Indication: SUPPLEMENTATION THERAPY
     Dosage: 2000mg daily
  7. ALLOPURINOL [Concomitant]
     Indication: GOUT
  8. PREMARIN [Concomitant]
     Indication: PRODUCT USED FOR UNKNOWN INDICATION
     Dosage: TWICE WEEKLY
  9. HUMIRA 40 MG/0.8 ML PEN [Suspect]
     Indication: RHEUMATOID ARTHRITIS
     Dates: start: 2009, end: 201101
  10. HUMIRA 40 MG/0.8 ML PEN [Suspect]
     Dates: start: 201103, end: 201104
  11. HUMIRA 40 MG/0.8 ML PEN [Suspect]
     Dates: start: 201106, end: 201107
  12. HUMIRA 40 MG/0.8 ML PEN [Suspect]
     Dates: start: 201108
  13. METHOTREXATE [Suspect]
     Indication: PRODUCT USED FOR UNKNOWN INDICATION
  14. LEVOXYL [Concomitant]
     Indication: PRODUCT USED FOR UNKNOWN INDICATION
  15. HYDROCHLOROTHIAZIDE [Concomitant]
     Indication: FLUID RETENTION
     Dosage: 1-2 TABLETS AS NEEDED
  16. CELEBREX [Concomitant]
     Indication: RHEUMATOID ARTHRITIS
  17. NORCO [Concomitant]
     Indication: PAIN
     Dosage: 10/325 mg-QID as needed
  18. OMEGA [Concomitant]
     Indication: PRODUCT USED FOR UNKNOWN INDICATION
     Dosage: 2/200mg daily
  19. CALCIUM WITH VITAMIN D [Concomitant]
     Indication: PRODUCT USED FOR UNKNOWN INDICATION
     Dosage: Daily
  20. FOLIC ACID [Concomitant]
     Indication: HEPATITIS C
  21. ZOCOR [Concomitant]
     Indication: PRODUCT USED FOR UNKNOWN INDICATION
     Dosage: At night

REACTIONS (9)
  - Catheterisation cardiac [Recovered/Resolved]
  - Arthroscopy [Recovered/Resolved]
  - Bronchitis [Recovered/Resolved]
  - Injection site pain [Recovered/Resolved]
  - Injection site vesicles [Recovered/Resolved]
  - Urinary tract infection [Not Recovered/Not Resolved]
  - Nausea [Unknown]
  - Platelet count decreased [Unknown]
  - Urinary tract infection [Unknown]
